FAERS Safety Report 12304799 (Version 1)
Quarter: 2016Q2

REPORT INFORMATION
  Report Type: Spontaneous
  Country: US (occurrence: None)
  Receive Date: 20160425
  Receipt Date: 20160425
  Transmission Date: 20160815
  Serious: No
  Sender: FDA-Public Use
  Company Number: None

PATIENT
  Sex: Female

DRUGS (4)
  1. NAMENDA [Suspect]
     Active Substance: MEMANTINE HYDROCHLORIDE
  2. EXELON [Suspect]
     Active Substance: RIVASTIGMINE TARTRATE
  3. SEROQUEL [Suspect]
     Active Substance: QUETIAPINE FUMARATE
  4. ARICEPT [Suspect]
     Active Substance: DONEPEZIL HYDROCHLORIDE

REACTIONS (6)
  - Hip fracture [None]
  - Syncope [None]
  - Wrist fracture [None]
  - Restlessness [None]
  - Fall [None]
  - Contraindication to medical treatment [None]

NARRATIVE: CASE EVENT DATE: 201411
